FAERS Safety Report 7708135-2 (Version None)
Quarter: 2011Q3

REPORT INFORMATION
  Report Type: 
  Country: None (occurrence: None)
  Receive Date: 20110825
  Receipt Date: 20110816
  Transmission Date: 20111222
  Serious: No
  Sender: FDA-Public Use
  Company Number: US-BIOGENIDEC-2010BI036335

PATIENT
  Age: 49 Year
  Sex: Female

DRUGS (1)
  1. TYSABRI [Suspect]
     Indication: MULTIPLE SCLEROSIS
     Route: 042
     Dates: start: 20091008, end: 20110701

REACTIONS (6)
  - MULTIPLE SCLEROSIS [None]
  - HERPES VIRUS INFECTION [None]
  - PAIN IN EXTREMITY [None]
  - ASTHENIA [None]
  - HERPES ZOSTER [None]
  - ECZEMA EYELIDS [None]
